FAERS Safety Report 6295845-X (Version None)
Quarter: 2009Q3

REPORT INFORMATION
  Report Type: 
  Country: None (occurrence: None)
  Receive Date: 20090804
  Receipt Date: 20090728
  Transmission Date: 20100115
  Serious: Yes (Death, Hospitalization)
  Sender: FDA-Public Use
  Company Number: CA-ROCHE-571681

PATIENT
  Sex: Female
  Weight: 59 kg

DRUGS (5)
  1. CAPECITABINE [Suspect]
     Indication: BREAST CANCER
     Route: 048
     Dates: start: 20080328, end: 20080605
  2. EMPRACET [Concomitant]
     Route: 065
  3. PROCHLORPERAZINE [Concomitant]
     Indication: NAUSEA
     Dosage: DOSE REPORTED AS AS REQUIRED.
     Route: 042
     Dates: start: 20080609, end: 20080609
  4. IMODIUM [Concomitant]
     Dosage: DOSE REPORTED AS AS REQUIRED.
     Route: 048
     Dates: start: 20080408, end: 20080614
  5. POTASSIUM CHLORIDE [Concomitant]
     Indication: VOMITING
     Route: 042
     Dates: start: 20080609, end: 20080618

REACTIONS (4)
  - ABDOMINAL PAIN [None]
  - DISEASE PROGRESSION [None]
  - NAUSEA [None]
  - VOMITING [None]
